FAERS Safety Report 24464560 (Version 1)
Quarter: 2024Q4

REPORT INFORMATION
  Report Type: Report from Study
  Country: US (occurrence: US)
  Receive Date: 20241018
  Receipt Date: 20241018
  Transmission Date: 20250115
  Serious: No
  Sender: ROCHE
  Company Number: US-ROCHE-3492906

PATIENT
  Age: 62 Year
  Sex: Male
  Weight: 96.64 kg

DRUGS (31)
  1. XOLAIR [Suspect]
     Active Substance: OMALIZUMAB
     Indication: Exposure to chemical pollution
     Dosage: LAST DATE OF TREATMENT: 12/DEC/2023, FIRST START OF SERVICE 14/DEC/2022, LAST DOSE DATE EVERY 2 WEEK
     Route: 058
     Dates: start: 20221214
  2. XOLAIR [Suspect]
     Active Substance: OMALIZUMAB
     Indication: Asthma
     Route: 058
  3. FORMOTEROL [Concomitant]
     Active Substance: FORMOTEROL
  4. ALBUTEROL [Concomitant]
     Active Substance: ALBUTEROL
  5. PERFOROMIST [Concomitant]
     Active Substance: FORMOTEROL FUMARATE DIHYDRATE
     Dosage: 20 MCG INHALATION ROUTE
     Route: 055
  6. INCRUSE ELLIPTA [Concomitant]
     Active Substance: UMECLIDINIUM BROMIDE
  7. ASPIRIN [Concomitant]
     Active Substance: ASPIRIN
     Route: 048
  8. BUDESONIDE [Concomitant]
     Active Substance: BUDESONIDE
     Route: 055
  9. FLONASE [Concomitant]
     Active Substance: FLUTICASONE PROPIONATE
     Dosage: 50 MCG BY
     Route: 045
  10. LYRICA [Concomitant]
     Active Substance: PREGABALIN
     Route: 048
  11. MONTELUKAST [Concomitant]
     Active Substance: MONTELUKAST
     Route: 048
  12. OMEPRAZOLE [Concomitant]
     Active Substance: OMEPRAZOLE
     Route: 048
  13. SIMVASTATIN [Concomitant]
     Active Substance: SIMVASTATIN
  14. CYCLOBENZAPRINE HYDROCHLORIDE [Concomitant]
     Active Substance: CYCLOBENZAPRINE HYDROCHLORIDE
     Route: 048
  15. DULOXETINE [Concomitant]
     Active Substance: DULOXETINE
     Route: 048
  16. ESCITALOPRAM [Concomitant]
     Active Substance: ESCITALOPRAM OXALATE
     Route: 048
  17. LEVALBUTEROL [Concomitant]
     Active Substance: LEVALBUTEROL
  18. LEXAPRO [Concomitant]
     Active Substance: ESCITALOPRAM OXALATE
     Route: 048
  19. METFORMIN HYDROCHLORIDE [Concomitant]
     Active Substance: METFORMIN HYDROCHLORIDE
     Route: 048
  20. VITAMIN B12 [Concomitant]
     Active Substance: CYANOCOBALAMIN
     Dosage: 1000 MCG
     Route: 060
  21. ZYRTEC [Concomitant]
     Active Substance: CETIRIZINE HYDROCHLORIDE
     Route: 048
  22. EPINEPHRINE [Concomitant]
     Active Substance: EPINEPHRINE
  23. GABAPENTIN [Concomitant]
     Active Substance: GABAPENTIN
     Route: 048
  24. EZETIMIBE [Concomitant]
     Active Substance: EZETIMIBE
     Route: 048
  25. LEVAQUIN [Concomitant]
     Active Substance: LEVOFLOXACIN
     Route: 048
  26. LISINOPRIL [Concomitant]
     Active Substance: LISINOPRIL
  27. PREDNISONE [Concomitant]
     Active Substance: PREDNISONE
     Dosage: TAKE 40 MG FOR 4 DAYS, 40 MG FOR 3 DAYS
  28. ROSUVASTATIN CALCIUM [Concomitant]
     Active Substance: ROSUVASTATIN CALCIUM
     Route: 048
  29. SINGULAIR [Concomitant]
     Active Substance: MONTELUKAST SODIUM
     Route: 048
  30. TAMSULOSIN HYDROCHLORIDE [Concomitant]
     Active Substance: TAMSULOSIN HYDROCHLORIDE
     Route: 048
  31. IPRATROPIUM BROMIDE [Concomitant]
     Active Substance: IPRATROPIUM BROMIDE

REACTIONS (5)
  - Off label use [Unknown]
  - Off label use [Unknown]
  - Blood immunoglobulin E increased [Unknown]
  - Cough [Unknown]
  - Dyspnoea [Unknown]
